FAERS Safety Report 8697231 (Version 3)
Quarter: 2012Q4

REPORT INFORMATION
  Report Type: 
  Country: JP (occurrence: JP)
  Receive Date: 20120801
  Receipt Date: 20121002
  Transmission Date: 20130627
  Serious: Yes (Other)
  Sender: FDA-Public Use
  Company Number: JP-PFIZER INC-2012183065

PATIENT
  Age: 6 Year
  Sex: Female
  Weight: 14.6 kg

DRUGS (2)
  1. GENOTROPIN TC [Suspect]
     Indication: GROWTH HORMONE DEFICIENCY
     Dosage: 0.6 mg, 1x/day
     Route: 058
     Dates: start: 20120702, end: 20120726
  2. GENOTROPIN TC [Suspect]
     Dosage: 0.6 mg, 1x/day
     Route: 058
     Dates: start: 20120903

REACTIONS (1)
  - Sudden hearing loss [Recovered/Resolved]
